FAERS Safety Report 22527617 (Version 12)
Quarter: 2024Q3

REPORT INFORMATION
  Report Type: Report from Study
  Country: CA (occurrence: CA)
  Receive Date: 20230606
  Receipt Date: 20240912
  Transmission Date: 20241016
  Serious: Yes (Hospitalization, Other)
  Sender: NOVARTIS
  Company Number: CA-002147023-NVSC2022CA136344

PATIENT
  Age: 66 Year
  Sex: Female

DRUGS (10)
  1. COSENTYX [Suspect]
     Active Substance: SECUKINUMAB
     Indication: Ankylosing spondylitis
     Dosage: 150 MG, QMO
     Route: 058
     Dates: start: 20220308
  2. COSENTYX [Suspect]
     Active Substance: SECUKINUMAB
     Dosage: 150 MG, QW (0, 1, 2 AND 3)
     Route: 058
     Dates: start: 20220601
  3. COSENTYX [Suspect]
     Active Substance: SECUKINUMAB
     Dosage: 150 MG, QMO
     Route: 058
     Dates: start: 2022
  4. COSENTYX [Suspect]
     Active Substance: SECUKINUMAB
     Dosage: 150 MG, QMO
     Route: 058
     Dates: start: 20230708
  5. COSENTYX [Suspect]
     Active Substance: SECUKINUMAB
     Dosage: 150 MG, QMO
     Route: 058
  6. SIMPONI [Concomitant]
     Active Substance: GOLIMUMAB
     Indication: Product used for unknown indication
     Dosage: UNK
     Route: 048
  7. ADALIMUMAB [Concomitant]
     Active Substance: ADALIMUMAB
     Indication: Product used for unknown indication
     Dosage: UNK
     Route: 058
  8. CELEBREX [Concomitant]
     Active Substance: CELECOXIB
     Indication: Product used for unknown indication
     Dosage: UNK
     Route: 048
  9. MELOXICAM [Concomitant]
     Active Substance: MELOXICAM
     Indication: Product used for unknown indication
     Dosage: UNK
     Route: 048
  10. HUMIRA [Concomitant]
     Active Substance: ADALIMUMAB
     Indication: Product used for unknown indication
     Dosage: UNK
     Route: 048

REACTIONS (25)
  - Erythema [Unknown]
  - Arthritis infective [Unknown]
  - Pneumonia [Recovered/Resolved]
  - Pneumonia [Unknown]
  - Basal cell carcinoma [Unknown]
  - Wheezing [Unknown]
  - Middle insomnia [Unknown]
  - Blood pressure systolic increased [Unknown]
  - Oxygen saturation abnormal [Unknown]
  - Ill-defined disorder [Unknown]
  - Arthralgia [Recovering/Resolving]
  - Illness [Unknown]
  - Cystitis [Unknown]
  - Gastrointestinal infection [Unknown]
  - Pain [Unknown]
  - Weight decreased [Unknown]
  - Abdominal discomfort [Unknown]
  - Inflammation [Unknown]
  - Arthropathy [Unknown]
  - Injection site pustule [Unknown]
  - Blood pressure diastolic decreased [Unknown]
  - Oedema peripheral [Unknown]
  - Inappropriate schedule of product administration [Unknown]
  - Product dose omission issue [Unknown]
  - Drug ineffective [Unknown]

NARRATIVE: CASE EVENT DATE: 20220101
